FAERS Safety Report 5278915-4 (Version None)
Quarter: 2007Q1

REPORT INFORMATION
  Report Type: 
  Country: None (occurrence: None)
  Receive Date: 20070328
  Receipt Date: 20070321
  Transmission Date: 20070707
  Serious: Yes (Hospitalization)
  Sender: FDA-Public Use
  Company Number: US-ROCHE-486578

PATIENT
  Age: 62 Year
  Sex: Female
  Weight: 40.8 kg

DRUGS (2)
  1. CAPECITABINE [Suspect]
     Indication: COLON CANCER
     Route: 048
     Dates: start: 20070214, end: 20070221
  2. BEVACIZUMAB [Suspect]
     Indication: COLON CANCER
     Dosage: FORM:POWDER AND SOLVENT, INFUSION, SOLN.
     Route: 042
     Dates: start: 20070214

REACTIONS (3)
  - DEHYDRATION [None]
  - DIARRHOEA [None]
  - HYPONATRAEMIA [None]
